FAERS Safety Report 4496579-4 (Version None)
Quarter: 2004Q4

REPORT INFORMATION
  Report Type: 
  Country: None (occurrence: None)
  Receive Date: 20041109
  Receipt Date: 20041103
  Transmission Date: 20050328
  Serious: Yes (Other)
  Sender: FDA-Public Use
  Company Number: 200421052GDDC

PATIENT
  Age: 47 Year
  Sex: Male

DRUGS (1)
  1. TELFAST [Suspect]
     Indication: RHINITIS ALLERGIC
     Route: 048

REACTIONS (2)
  - CHEST DISCOMFORT [None]
  - EXTRASYSTOLES [None]
